FAERS Safety Report 8905583 (Version 1)
Quarter: 2012Q4

REPORT INFORMATION
  Report Type: 
  Country: US (occurrence: US)
  Receive Date: 20121109
  Receipt Date: 20121109
  Transmission Date: 20130627
  Serious: Yes (Other)
  Sender: FDA-Public Use
  Company Number: PHHY2012US102245

PATIENT
  Age: 49 Year
  Sex: Female
  Weight: 68.03 kg

DRUGS (1)
  1. GILENYA [Suspect]
     Indication: MULTIPLE SCLEROSIS
     Dosage: 0.5 mg, QD
     Route: 048
     Dates: start: 201108, end: 20120601

REACTIONS (6)
  - Red blood cell count decreased [Recovered/Resolved]
  - Nephrolithiasis [Recovered/Resolved]
  - White blood cell count decreased [Recovered/Resolved]
  - Platelet count decreased [Recovered/Resolved]
  - Urinary retention [Unknown]
  - Pain in extremity [Unknown]
